FAERS Safety Report 22269443 (Version 1)
Quarter: 2023Q2

REPORT INFORMATION
  Report Type: Spontaneous
  Country: US (occurrence: None)
  Receive Date: 20230429
  Receipt Date: 20230429
  Transmission Date: 20230722
  Serious: No
  Sender: FDA-Public Use
  Company Number: None

PATIENT
  Age: 56 Year
  Sex: Female
  Weight: 57.15 kg

DRUGS (12)
  1. IBRANCE [Suspect]
     Active Substance: PALBOCICLIB
     Indication: Breast cancer female
     Dosage: OTHER FREQUENCY : 3W, 1W OFF;?
     Route: 048
  2. ANASTROZOLE [Concomitant]
     Active Substance: ANASTROZOLE
  3. DICLOFENAC SODIUM [Concomitant]
     Active Substance: DICLOFENAC SODIUM
  4. FLUOXETINE [Concomitant]
  5. Lomotil [Concomitant]
  6. MULTIVITAMIN [Concomitant]
  7. PANTOPRAZOLE [Concomitant]
  8. Plaquenil [Concomitant]
  9. PREDNISONE [Concomitant]
  10. PROMETHAZINE [Concomitant]
  11. VITAMIN D3 [Suspect]
     Active Substance: CHOLECALCIFEROL
  12. XGEVA [Concomitant]
     Active Substance: DENOSUMAB

REACTIONS (1)
  - White blood cell count decreased [None]
